FAERS Safety Report 6056843-4 (Version None)
Quarter: 2009Q1

REPORT INFORMATION
  Report Type: 
  Country: None (occurrence: None)
  Receive Date: 20090129
  Receipt Date: 20090120
  Transmission Date: 20090719
  Serious: Yes (Other)
  Sender: FDA-Public Use
  Company Number: BE-PFIZER INC-2009158320

PATIENT

DRUGS (5)
  1. AROMASIN [Suspect]
     Dosage: 25 MG, 1X/DAY
     Route: 048
  2. LEDERTREXATE [Suspect]
     Indication: PSORIATIC ARTHROPATHY
     Route: 048
     Dates: start: 20080703, end: 20081118
  3. OXAPROZIN [Concomitant]
     Route: 048
  4. LIPITOR [Concomitant]
     Route: 048
  5. CALCIUM CARBONATE/COLECALCIFEROL [Concomitant]
     Route: 048

REACTIONS (1)
  - ALANINE AMINOTRANSFERASE INCREASED [None]
